FAERS Safety Report 8292372-5 (Version None)
Quarter: 2012Q2

REPORT INFORMATION
  Report Type: 
  Country: None (occurrence: None)
  Receive Date: 20120417
  Receipt Date: 20120413
  Transmission Date: 20120825
  Serious: Yes (Other)
  Sender: FDA-Public Use
  Company Number: CHPA2012US008154

PATIENT
  Age: 62 Year
  Sex: Male

DRUGS (5)
  1. GINKGO BILOBA [Suspect]
     Dosage: UNK, UNK
     Route: 065
     Dates: start: 20120301
  2. AMANTADINE HCL [Concomitant]
     Indication: TREMOR
  3. PREVACID 24 HR [Suspect]
     Indication: DYSPEPSIA
     Dosage: 15 MG, QD
     Route: 048
     Dates: start: 20110101
  4. GINSENG [Suspect]
     Dosage: UNK, UNK
     Dates: start: 20120301
  5. FENUGREEK [Suspect]
     Dosage: UNK, UNK
     Dates: start: 20120301

REACTIONS (10)
  - NASOPHARYNGITIS [None]
  - EYELID DISORDER [None]
  - BRONCHITIS [None]
  - PRODUCTIVE COUGH [None]
  - HYPOTENSION [None]
  - SINUS DISORDER [None]
  - CHRONIC OBSTRUCTIVE PULMONARY DISEASE [None]
  - EYE PRURITUS [None]
  - OFF LABEL USE [None]
  - INCORRECT DRUG ADMINISTRATION DURATION [None]
